FAERS Safety Report 23780585 (Version 1)
Quarter: 2024Q2

REPORT INFORMATION
  Report Type: Other
  Country: US (occurrence: US)
  Receive Date: 20240425
  Receipt Date: 20240425
  Transmission Date: 20240715
  Serious: Yes (Life-Threatening, Other)
  Sender: FDA-Public Use
  Company Number: US-Appco Pharma LLC-2156000

PATIENT
  Age: 40 Year
  Sex: Male

DRUGS (3)
  1. FENOFIBRATE [Suspect]
     Active Substance: FENOFIBRATE
     Indication: Hypertriglyceridaemia
     Route: 065
  2. OMEGA-3 ACIDS [Suspect]
     Active Substance: OMEGA-3 FATTY ACIDS
     Route: 065
  3. NIACIN [Suspect]
     Active Substance: NIACIN
     Route: 065

REACTIONS (2)
  - Drug ineffective [Unknown]
  - Pancreatitis relapsing [Unknown]
